FAERS Safety Report 20586728 (Version 7)
Quarter: 2024Q4

REPORT INFORMATION
  Report Type: Spontaneous
  Country: JP (occurrence: JP)
  Receive Date: 20220313
  Receipt Date: 20241205
  Transmission Date: 20250114
  Serious: Yes (Hospitalization, Other)
  Sender: BRISTOL-MYERS SQUIBB COMPANY
  Company Number: JP-BRISTOL-MYERS SQUIBB COMPANY-BMS-2022-035097

PATIENT
  Age: 58 Year
  Sex: Male
  Weight: 57.3 kg

DRUGS (14)
  1. YERVOY [Suspect]
     Active Substance: IPILIMUMAB
     Indication: Non-small cell lung cancer recurrent
     Dosage: 1 MILLIGRAM/KILOGRAM, Q6WK
     Route: 041
     Dates: start: 20210219
  2. YERVOY [Suspect]
     Active Substance: IPILIMUMAB
     Dosage: 1 MILLIGRAM/KILOGRAM, Q6WK
     Route: 041
     Dates: start: 20210409
  3. YERVOY [Suspect]
     Active Substance: IPILIMUMAB
     Dosage: 1 MILLIGRAM/KILOGRAM, Q6WK
     Route: 041
     Dates: start: 20210521
  4. YERVOY [Suspect]
     Active Substance: IPILIMUMAB
     Dosage: 1 MILLIGRAM/KILOGRAM, Q6WK
     Route: 041
     Dates: start: 20230207
  5. OPDIVO [Suspect]
     Active Substance: NIVOLUMAB
     Indication: Non-small cell lung cancer recurrent
     Dosage: 360 MILLIGRAM, Q3WK
     Route: 041
     Dates: start: 20210219
  6. OPDIVO [Suspect]
     Active Substance: NIVOLUMAB
     Dosage: 360 MILLIGRAM, Q3WK
     Route: 041
     Dates: start: 20210312
  7. OPDIVO [Suspect]
     Active Substance: NIVOLUMAB
     Dosage: 360 MILLIGRAM, Q3WK
     Route: 041
     Dates: start: 20210409
  8. OPDIVO [Suspect]
     Active Substance: NIVOLUMAB
     Dosage: 360 MILLIGRAM, Q3WK
     Route: 041
     Dates: start: 20210430
  9. OPDIVO [Suspect]
     Active Substance: NIVOLUMAB
     Dosage: 360 MILLIGRAM, Q3WK
     Route: 041
     Dates: start: 20210521
  10. OPDIVO [Suspect]
     Active Substance: NIVOLUMAB
     Dosage: 360 MILLIGRAM, Q3WK
     Route: 041
     Dates: start: 20230207
  11. CISPLATIN [Suspect]
     Active Substance: CISPLATIN
     Indication: Non-small cell lung cancer recurrent
     Dosage: 75 MILLIGRAM/SQ. METER, Q3WK
     Dates: start: 20210219, end: 20210312
  12. CISPLATIN [Suspect]
     Active Substance: CISPLATIN
     Dosage: 75 MILLIGRAM/SQ. METER, Q3WK
     Dates: start: 20210312
  13. PEMETREXED [Suspect]
     Active Substance: PEMETREXED
     Indication: Non-small cell lung cancer recurrent
     Dosage: 500 MILLIGRAM/SQ. METER, Q3WK
     Dates: start: 20210219, end: 20210312
  14. PEMETREXED [Suspect]
     Active Substance: PEMETREXED
     Dosage: 500 MILLIGRAM/SQ. METER, Q3WK
     Dates: start: 20210312

REACTIONS (13)
  - Blood thyroid stimulating hormone decreased [Recovering/Resolving]
  - Blood sodium decreased [Recovering/Resolving]
  - Eosinophil percentage increased [Unknown]
  - Hypopituitarism [Unknown]
  - Dermatitis [Unknown]
  - Constipation [Unknown]
  - Nausea [Unknown]
  - Vomiting [Unknown]
  - Malaise [Recovering/Resolving]
  - Decreased appetite [Recovering/Resolving]
  - Hypoglycaemia [Recovering/Resolving]
  - Type 1 diabetes mellitus [Unknown]
  - Diabetic ketoacidosis [Unknown]

NARRATIVE: CASE EVENT DATE: 20210219
